FAERS Safety Report 21097889 (Version 1)
Quarter: 2022Q3

REPORT INFORMATION
  Report Type: Spontaneous
  Country: TR (occurrence: TR)
  Receive Date: 20220719
  Receipt Date: 20220719
  Transmission Date: 20221027
  Serious: Yes (Other)
  Sender: FDA-Public Use
  Company Number: TR-SUN PHARMACEUTICAL INDUSTRIES LTD-2022RR-345008

PATIENT
  Age: 19 Year
  Sex: Male

DRUGS (2)
  1. NOREPINEPHRINE [Suspect]
     Active Substance: NOREPINEPHRINE
     Indication: Hypotension
     Dosage: 2 MCG/KG/H
     Route: 042
  2. TERLIPRESSIN [Suspect]
     Active Substance: TERLIPRESSIN
     Indication: Hypotension
     Dosage: 100 MG/H
     Route: 042

REACTIONS (2)
  - Cardiac arrest [Unknown]
  - Drug ineffective [Unknown]
